FAERS Safety Report 12204935 (Version 1)
Quarter: 2016Q1

REPORT INFORMATION
  Report Type: Spontaneous
  Country: NO (occurrence: NO)
  Receive Date: 20160323
  Receipt Date: 20160323
  Transmission Date: 20160526
  Serious: Yes (Hospitalization)
  Sender: FDA-Public Use
  Company Number: NO-ASTRAZENECA-2016SE30370

PATIENT
  Age: 23316 Day
  Sex: Female

DRUGS (6)
  1. BYDUREON [Suspect]
     Active Substance: EXENATIDE
     Indication: TYPE 2 DIABETES MELLITUS
     Dosage: ONCE A WEEK
     Route: 065
     Dates: start: 20160116, end: 20160213
  2. QUININE [Concomitant]
     Active Substance: QUININE
     Indication: MUSCLE SPASMS
     Dates: start: 20160113, end: 20160216
  3. COAPROVEL [Concomitant]
     Active Substance: HYDROCHLOROTHIAZIDE\IRBESARTAN
     Indication: HYPERTENSION
     Dosage: 300/12.5 MG, 1 DF
     Route: 048
     Dates: start: 2005
  4. PRAVASTATIN [Concomitant]
     Active Substance: PRAVASTATIN\PRAVASTATIN SODIUM
     Indication: HYPERCHOLESTEROLAEMIA
     Route: 048
     Dates: start: 2010
  5. ALLOPUR [Concomitant]
     Active Substance: ALLOPURINOL
     Indication: GOUT
     Route: 048
     Dates: start: 2008
  6. LEVAXIN [Concomitant]
     Active Substance: LEVOTHYROXINE SODIUM
     Indication: HYPOTHYROIDISM
     Route: 048
     Dates: start: 2005

REACTIONS (5)
  - Nausea [Recovered/Resolved]
  - Prerenal failure [Recovered/Resolved]
  - Vomiting [Recovered/Resolved]
  - Diarrhoea [Recovered/Resolved]
  - Dehydration [Recovered/Resolved]

NARRATIVE: CASE EVENT DATE: 20160209
